FAERS Safety Report 15192260 (Version 3)
Quarter: 2021Q2

REPORT INFORMATION
  Report Type: Spontaneous
  Country: PL (occurrence: PL)
  Receive Date: 20180724
  Receipt Date: 20210510
  Transmission Date: 20210716
  Serious: Yes (Hospitalization, Other)
  Sender: FDA-Public Use
  Company Number: PHHY2018PL053629

PATIENT
  Age: 54 Year
  Sex: Male
  Weight: 74 kg

DRUGS (2)
  1. TACROLIMUS. [Suspect]
     Active Substance: TACROLIMUS
     Indication: IMMUNOSUPPRESSION
     Dosage: 3.5 MG, QD
     Route: 048
     Dates: start: 20180213
  2. TACROLIMUS. [Suspect]
     Active Substance: TACROLIMUS
     Dosage: 3.5 MG, QD
     Route: 048
     Dates: start: 20180313

REACTIONS (3)
  - Chest X-ray abnormal [Recovered/Resolved]
  - Chest X-ray abnormal [Recovered/Resolved with Sequelae]
  - Chest X-ray abnormal [Recovered/Resolved with Sequelae]

NARRATIVE: CASE EVENT DATE: 20180221
